FAERS Safety Report 8767110 (Version 1)
Quarter: 2012Q4

REPORT INFORMATION
  Report Type: 
  Country: IT (occurrence: IT)
  Receive Date: 20120904
  Receipt Date: 20120904
  Transmission Date: 20130627
  Serious: Yes (Death, Other)
  Sender: FDA-Public Use
  Company Number: IT-JNJFOC-20120814200

PATIENT
  Age: 40 Year
  Sex: Female

DRUGS (5)
  1. DOXORUBICIN [Suspect]
     Indication: BREAST CANCER
     Dosage: 3 cycles
     Route: 042
  2. DOXORUBICIN [Suspect]
     Indication: BREAST CANCER
     Dosage: 6 cycles
     Route: 042
     Dates: start: 200609, end: 200701
  3. GEMCITABINE [Suspect]
     Indication: BREAST CANCER
     Dosage: 6 cycles
     Route: 065
     Dates: start: 200609, end: 200701
  4. GEMCITABINE [Suspect]
     Indication: BREAST CANCER
     Dosage: 3 cycles
     Route: 065
  5. RADIATION THERAPY [Concomitant]
     Indication: BREAST CANCER
     Route: 065

REACTIONS (9)
  - Metastases to lung [Unknown]
  - Breast cancer recurrent [Fatal]
  - Metastases to skin [Unknown]
  - Ejection fraction decreased [Unknown]
  - Metastases to central nervous system [Unknown]
  - Leukopenia [Unknown]
  - Erythema [Unknown]
  - Lymphadenopathy [Unknown]
  - Haematotoxicity [Unknown]
